FAERS Safety Report 9233357 (Version 2)
Quarter: 2015Q3

REPORT INFORMATION
  Report Type: Report from Study
  Country: US (occurrence: US)
  Receive Date: 20130416
  Receipt Date: 20150925
  Transmission Date: 20151125
  Serious: Yes (Hospitalization, Other)
  Sender: FDA-Public Use
  Company Number: US-ELI_LILLY_AND_COMPANY-US201304002686

PATIENT
  Sex: Female

DRUGS (4)
  1. IBUPROFEN. [Concomitant]
     Active Substance: IBUPROFEN
     Dosage: UNK, UNKNOWN
     Route: 065
  2. NAPROSYN [Concomitant]
     Active Substance: NAPROXEN
     Dosage: UNK, UNKNOWN
     Route: 065
  3. HUMATROPE [Suspect]
     Active Substance: SOMATROPIN
     Indication: EMPTY SELLA SYNDROME
     Dosage: 6 MG, TID
     Route: 065
     Dates: start: 2003, end: 2011
  4. PERMAX                             /00613002/ [Concomitant]
     Dosage: UNK, UNKNOWN
     Route: 065

REACTIONS (7)
  - Necrosis [Unknown]
  - Appendicitis perforated [Unknown]
  - Deep vein thrombosis [Unknown]
  - Thrombosis [Unknown]
  - Malaise [Unknown]
  - Cellulitis [Unknown]
  - Muscle atrophy [Unknown]

NARRATIVE: CASE EVENT DATE: 2011
